FAERS Safety Report 5469592-8 (Version None)
Quarter: 2007Q3

REPORT INFORMATION
  Report Type: 
  Country: None (occurrence: None)
  Receive Date: 20070925
  Receipt Date: 20070925
  Transmission Date: 20080115
  Serious: Yes (Other)
  Sender: FDA-Public Use
  Company Number: None

PATIENT
  Sex: Female
  Weight: 74.8435 kg

DRUGS (10)
  1. ZYRTEC [Suspect]
     Indication: HYPERSENSITIVITY
     Dosage: 10 MG  DAILY  PO
     Route: 048
     Dates: start: 20000928, end: 20070917
  2. PREVACID [Concomitant]
  3. PRILOSEC [Concomitant]
  4. ZOLOFT [Concomitant]
  5. PROZAC [Concomitant]
  6. LEXAPRO [Concomitant]
  7. CITALOPRAM [Concomitant]
  8. TYLENOL (CAPLET) [Concomitant]
  9. IBUPROFEN [Concomitant]
  10. FLINTSTONES WITH IRON [Concomitant]

REACTIONS (19)
  - ABNORMAL DREAMS [None]
  - ANHEDONIA [None]
  - ANXIETY [None]
  - APATHY [None]
  - DEPERSONALISATION [None]
  - DEPRESSION [None]
  - DISTURBANCE IN ATTENTION [None]
  - FATIGUE [None]
  - HYPERSOMNIA [None]
  - ILL-DEFINED DISORDER [None]
  - IMPAIRED DRIVING ABILITY [None]
  - INSOMNIA [None]
  - LAZINESS [None]
  - LOSS OF EMPLOYMENT [None]
  - LOSS OF LIBIDO [None]
  - PHARMACEUTICAL PRODUCT COMPLAINT [None]
  - RESPIRATORY DISORDER [None]
  - STRESS [None]
  - TENSION [None]
